FAERS Safety Report 9857089 (Version 1)
Quarter: 2014Q1

REPORT INFORMATION
  Report Type: Spontaneous
  Country: IN (occurrence: None)
  Receive Date: 20140128
  Receipt Date: 20140128
  Transmission Date: 20141002
  Serious: Yes (Other)
  Sender: FDA-Public Use
  Company Number: 2014P1000119

PATIENT
  Age: 46 Year
  Sex: Male

DRUGS (4)
  1. RIFAMPIN [Suspect]
     Indication: MYCOBACTERIUM TUBERCULOSIS COMPLEX TEST POSITIVE
  2. ISONIAZID [Concomitant]
  3. PYRAZINAMIDE [Concomitant]
  4. ETHAMBUTOL [Concomitant]

REACTIONS (7)
  - Chest pain [None]
  - Vomiting [None]
  - Blood pressure decreased [None]
  - Secondary adrenocortical insufficiency [None]
  - Hypothalamic pituitary adrenal axis suppression [None]
  - Hypotension [None]
  - Postpartum hypopituitarism [None]
